FAERS Safety Report 18731834 (Version 6)
Quarter: 2021Q1

REPORT INFORMATION
  Report Type: Report from Study
  Country: CO (occurrence: CO)
  Receive Date: 20210112
  Receipt Date: 20210303
  Transmission Date: 20210419
  Serious: Yes (Other)
  Sender: FDA-Public Use
  Company Number: CO-TAKEDA-CO202027035

PATIENT
  Age: 38 Year
  Sex: Female
  Weight: 65 kg

DRUGS (1)
  1. VELAGLUCERASE ALFA [Suspect]
     Active Substance: VELAGLUCERASE ALFA
     Indication: GAUCHER^S DISEASE
     Dosage: 3600 INTERNATIONAL UNIT, ALTERNATE WEEKS
     Route: 042
     Dates: start: 20090801

REACTIONS (8)
  - SARS-CoV-2 test positive [Recovered/Resolved]
  - Anosmia [Recovering/Resolving]
  - Weight increased [Recovered/Resolved]
  - Incorrect dose administered [Unknown]
  - Stress [Recovered/Resolved]
  - Ageusia [Recovered/Resolved]
  - Inappropriate schedule of product administration [Unknown]
  - Herpes zoster [Recovered/Resolved]

NARRATIVE: CASE EVENT DATE: 20200815
